FAERS Safety Report 4778465-5 (Version None)
Quarter: 2005Q3

REPORT INFORMATION
  Report Type: 
  Country: None (occurrence: None)
  Receive Date: 20050923
  Receipt Date: 20050923
  Transmission Date: 20060218
  Serious: Yes (Hospitalization)
  Sender: FDA-Public Use
  Company Number: None

PATIENT
  Age: 56 Year
  Sex: Male
  Weight: 76.4 kg

DRUGS (6)
  1. TRAZODONE 100MG [Suspect]
     Indication: INSOMNIA
     Dosage: 100MG HS PO
     Route: 048
     Dates: start: 20050404, end: 20050704
  2. ALPRAZOLAM [Concomitant]
  3. NPH INSULIN [Concomitant]
  4. ASPIRIN [Concomitant]
  5. IBU [Concomitant]
  6. ABILIFY [Concomitant]

REACTIONS (4)
  - ALCOHOL USE [None]
  - DYSURIA [None]
  - MICTURITION URGENCY [None]
  - PRIAPISM [None]
